FAERS Safety Report 9162194 (Version 1)
Quarter: 2013Q1

REPORT INFORMATION
  Report Type: Spontaneous
  Country: US (occurrence: US)
  Receive Date: 20130314
  Receipt Date: 20130314
  Transmission Date: 20140127
  Serious: Yes (Other)
  Sender: FDA-Public Use
  Company Number: US-BAYER-2013-029532

PATIENT
  Age: 27 Year
  Sex: Female
  Weight: 105.22 kg

DRUGS (8)
  1. YASMIN [Suspect]
  2. VICODIN ES [Concomitant]
  3. ALBUTEROL [Concomitant]
  4. AMOXICILLIN [Concomitant]
     Dosage: 500 MG, TID
  5. VOLTAREN [Concomitant]
     Dosage: 50 MG, BID
  6. NAPROSYN [Concomitant]
     Dosage: 500 MG, BID
  7. MAGNESIUM CITRATE [Concomitant]
  8. DULCOLAX [BISACODYL] [Concomitant]

REACTIONS (1)
  - Thrombophlebitis superficial [None]
